FAERS Safety Report 7740517-5 (Version None)
Quarter: 2011Q3

REPORT INFORMATION
  Report Type: 
  Country: None (occurrence: None)
  Receive Date: 20110909
  Receipt Date: 20110901
  Transmission Date: 20111222
  Serious: No
  Sender: FDA-Public Use
  Company Number: US-PFIZER INC-2011196280

PATIENT
  Age: 64 Year
  Sex: Male

DRUGS (7)
  1. VENTOLIN DS [Concomitant]
     Dosage: UNK
     Route: 055
  2. NIFEDIPINE [Suspect]
     Indication: HYPERTENSION
     Dosage: 30 MG, 1X/DAY
     Route: 048
     Dates: start: 20100901, end: 20110808
  3. ZOPICLONE [Concomitant]
     Dosage: 1/2 TO 1 TABLET AT BEDTIME
  4. RABEPRAZOLE [Concomitant]
     Dosage: 20 MG, DAILY
  5. ATROVENT [Concomitant]
     Dosage: UNK
     Route: 055
  6. MICARDIS [Concomitant]
     Dosage: 80 MG, DAILY
  7. PULMICORT [Concomitant]

REACTIONS (1)
  - CONSTIPATION [None]
